FAERS Safety Report 24305379 (Version 1)
Quarter: 2024Q3

REPORT INFORMATION
  Report Type: Spontaneous
  Country: US (occurrence: None)
  Receive Date: 20240911
  Receipt Date: 20240911
  Transmission Date: 20241016
  Serious: Yes (Other)
  Sender: ASTRAZENECA
  Company Number: 2024A200756

PATIENT
  Age: 74 Year
  Sex: Male

DRUGS (1)
  1. TRUQAP [Suspect]
     Active Substance: CAPIVASERTIB
     Route: 048

REACTIONS (3)
  - Prostate cancer [Unknown]
  - Testicular cancer metastatic [Unknown]
  - PIK3CA-activated mutation [Unknown]
